FAERS Safety Report 20677707 (Version 1)
Quarter: 2022Q2

REPORT INFORMATION
  Report Type: Spontaneous
  Country: US (occurrence: US)
  Receive Date: 20220406
  Receipt Date: 20220406
  Transmission Date: 20220721
  Serious: No
  Sender: FDA-Public Use
  Company Number: US-JNJFOC-20220405037

PATIENT

DRUGS (1)
  1. IMODIUM [Suspect]
     Active Substance: LOPERAMIDE HYDROCHLORIDE
     Indication: Irritable bowel syndrome
     Dosage: 6-8 IMODIUM A DAY
     Route: 065

REACTIONS (3)
  - Product use in unapproved indication [Unknown]
  - Incorrect dose administered [Unknown]
  - Product packaging difficult to open [Unknown]
